FAERS Safety Report 5283094-3 (Version None)
Quarter: 2007Q1

REPORT INFORMATION
  Report Type: 
  Country: None (occurrence: None)
  Receive Date: 20061226
  Receipt Date: 20061030
  Transmission Date: 20070707
  Serious: No
  Sender: FDA-Public Use
  Company Number: 2006PV024219

PATIENT
  Age: 53 Year
  Sex: Male

DRUGS (4)
  1. SYMLIN [Suspect]
     Indication: DIABETES MELLITUS NON-INSULIN-DEPENDENT
     Dosage: 60 MCG; ;SC
     Route: 058
     Dates: start: 20061030
  2. REGULAR INSULIN [Concomitant]
  3. METFORMIN [Concomitant]
  4. STARLIX [Concomitant]

REACTIONS (1)
  - MEDICATION ERROR [None]
